FAERS Safety Report 7883262-8 (Version None)
Quarter: 2011Q4

REPORT INFORMATION
  Report Type: 
  Country: None (occurrence: None)
  Receive Date: 20111102
  Receipt Date: 20111020
  Transmission Date: 20120403
  Serious: Yes (Other)
  Sender: FDA-Public Use
  Company Number: DE-JNJFOC-20111010460

PATIENT
  Sex: Male

DRUGS (4)
  1. PALIPERIDONE [Suspect]
     Indication: PRODUCT USED FOR UNKNOWN INDICATION
     Route: 030
  2. RISPERDAL [Concomitant]
     Route: 048
  3. RISPERDAL [Concomitant]
     Route: 048
  4. PALIPERIDONE [Suspect]
     Route: 030

REACTIONS (1)
  - GAZE PALSY [None]
